FAERS Safety Report 16361677 (Version 4)
Quarter: 2019Q3

REPORT INFORMATION
  Report Type: Spontaneous
  Country: US (occurrence: US)
  Receive Date: 20190528
  Receipt Date: 20190705
  Transmission Date: 20191004
  Serious: No
  Sender: FDA-Public Use
  Company Number: US-009507513-1905USA011600

PATIENT
  Age: 38 Year
  Sex: Female
  Weight: 88.89 kg

DRUGS (3)
  1. NEXPLANON [Suspect]
     Active Substance: ETONOGESTREL
     Indication: CONTRACEPTION
     Dosage: 1 DOSAGE FORM, IN LEFT ARM
     Route: 059
     Dates: start: 20170508, end: 20190503
  2. NEXPLANON [Suspect]
     Active Substance: ETONOGESTREL
     Dosage: 68 MILLIGRAM
     Route: 059
     Dates: start: 20190510
  3. VITAMINS (UNSPECIFIED) [Concomitant]
     Active Substance: VITAMINS
     Dosage: 1 DOSAGE FORM, TOTAL DAILY DOSE 4 TABLET
     Route: 048

REACTIONS (6)
  - Pain in extremity [Recovered/Resolved]
  - Device breakage [Recovered/Resolved]
  - Hypoaesthesia [Recovered/Resolved]
  - Neck pain [Recovered/Resolved]
  - Device kink [Recovered/Resolved]
  - Complication of device removal [Recovered/Resolved]

NARRATIVE: CASE EVENT DATE: 20181026
